FAERS Safety Report 16346528 (Version 15)
Quarter: 2023Q2

REPORT INFORMATION
  Report Type: Spontaneous
  Country: DE (occurrence: DE)
  Receive Date: 20190523
  Receipt Date: 20230619
  Transmission Date: 20230721
  Serious: Yes (Hospitalization, Other)
  Sender: FDA-Public Use
  Company Number: DE-ROCHE-2176591

PATIENT
  Age: 49 Year
  Sex: Female
  Weight: 78 kg

DRUGS (35)
  1. ATORVASTATIN [Suspect]
     Active Substance: ATORVASTATIN
     Indication: Blood cholesterol increased
     Dosage: 20MG
     Route: 065
     Dates: end: 20190530
  2. METFORMIN HYDROCHLORIDE [Suspect]
     Active Substance: METFORMIN HYDROCHLORIDE
     Indication: Product used for unknown indication
     Dosage: 1000 MG, BID
     Route: 065
     Dates: start: 20190422
  3. METFORMIN HYDROCHLORIDE [Suspect]
     Active Substance: METFORMIN HYDROCHLORIDE
     Dosage: 500 MG, BID
     Route: 065
     Dates: start: 20190423
  4. OCRELIZUMAB [Suspect]
     Active Substance: OCRELIZUMAB
     Indication: Relapsing-remitting multiple sclerosis
     Dosage: 300 MG, QD
     Route: 042
     Dates: start: 20180808
  5. OCRELIZUMAB [Suspect]
     Active Substance: OCRELIZUMAB
     Dosage: 600 MG
     Route: 042
  6. OCRELIZUMAB [Suspect]
     Active Substance: OCRELIZUMAB
     Dosage: 300 MG, QD
     Route: 042
     Dates: start: 20180822
  7. OCRELIZUMAB [Suspect]
     Active Substance: OCRELIZUMAB
     Dosage: 600 MG, QD
     Route: 042
     Dates: start: 20190220
  8. OCRELIZUMAB [Suspect]
     Active Substance: OCRELIZUMAB
     Dosage: 600 MG, QD
     Route: 042
     Dates: start: 20200813
  9. OCRELIZUMAB [Suspect]
     Active Substance: OCRELIZUMAB
     Dosage: 600 MG (5TH MAINTENANCE DOSE)
     Route: 042
     Dates: start: 20210623
  10. APYDAN [Concomitant]
     Indication: Product used for unknown indication
     Dosage: 600 MG, BID
     Route: 048
     Dates: start: 20180724
  11. APYDAN [Concomitant]
     Dosage: 600 MG (0.5 DAY)
     Route: 065
  12. ALBUTEROL [Concomitant]
     Active Substance: ALBUTEROL
     Indication: Product used for unknown indication
     Dosage: UNK (AS NEEDED)
     Route: 065
  13. SIMVASTATIN [Concomitant]
     Active Substance: SIMVASTATIN
     Indication: Product used for unknown indication
     Dosage: 20 MG, QD ( 1X/DAY)
     Route: 065
     Dates: start: 20190823
  14. LEVETIRACETAM [Concomitant]
     Active Substance: LEVETIRACETAM
     Indication: Epilepsy
     Dosage: 2000 MG, DAILY (1000 MG EVERY 0.5 DAY)
     Route: 048
     Dates: start: 2017
  15. LEVETIRACETAM [Concomitant]
     Active Substance: LEVETIRACETAM
     Dosage: 1000 MG, 0.5 DAY
     Route: 048
     Dates: start: 2017
  16. SODIUM CHLORIDE [Concomitant]
     Active Substance: SODIUM CHLORIDE
     Indication: Product used for unknown indication
     Dosage: 100 ML
     Route: 065
  17. FLUTICASONE PROPIONATE\SALMETEROL XINAFOATE [Concomitant]
     Active Substance: FLUTICASONE PROPIONATE\SALMETEROL XINAFOATE
     Indication: Asthma
     Dosage: 1100 UG, DAILY (550 UG EVERY 0.5 DAY)
     Route: 065
     Dates: start: 2011
  18. FLUTICASONE PROPIONATE\SALMETEROL XINAFOATE [Concomitant]
     Active Substance: FLUTICASONE PROPIONATE\SALMETEROL XINAFOATE
     Dosage: 2 DOSAGE FORM, QD (1 DF EVERY 0.5 DAY)
     Route: 065
  19. FLUTICASONE PROPIONATE\SALMETEROL XINAFOATE [Concomitant]
     Active Substance: FLUTICASONE PROPIONATE\SALMETEROL XINAFOATE
     Dosage: 1 DOSAGE FORM
     Route: 065
  20. FLUTICASONE PROPIONATE\SALMETEROL XINAFOATE [Concomitant]
     Active Substance: FLUTICASONE PROPIONATE\SALMETEROL XINAFOATE
     Dosage: 550 UG, 0.5 DAY
     Route: 065
     Dates: start: 2011
  21. FLUTICASONE PROPIONATE\SALMETEROL XINAFOATE [Concomitant]
     Active Substance: FLUTICASONE PROPIONATE\SALMETEROL XINAFOATE
     Dosage: 1 DOSAGE FORM, 0.5 DAY
     Route: 065
     Dates: start: 2011
  22. FLUTICASONE PROPIONATE\SALMETEROL XINAFOATE [Concomitant]
     Active Substance: FLUTICASONE PROPIONATE\SALMETEROL XINAFOATE
     Dosage: 550 UG
     Route: 065
     Dates: start: 2011
  23. LEVOTHYROXINE SODIUM\POTASSIUM IODIDE [Concomitant]
     Active Substance: LEVOTHYROXINE SODIUM\POTASSIUM IODIDE
     Indication: Hypothyroidism
     Dosage: 100 UG, 1X/DAY
     Route: 048
     Dates: start: 2011
  24. LEVOTHYROXINE SODIUM\POTASSIUM IODIDE [Concomitant]
     Active Substance: LEVOTHYROXINE SODIUM\POTASSIUM IODIDE
     Dosage: 100 UG, QD
     Route: 048
  25. CLEMASTINE FUMARATE [Concomitant]
     Active Substance: CLEMASTINE FUMARATE
     Indication: Premedication
     Dosage: UNK
     Route: 042
  26. IBUPROFEN [Concomitant]
     Active Substance: IBUPROFEN
     Indication: Product used for unknown indication
     Dosage: AS REQUIRED
     Route: 048
  27. IBUPROFEN [Concomitant]
     Active Substance: IBUPROFEN
     Dosage: (1-0-0-1)
     Route: 065
  28. PANTOPRAZOLE [Concomitant]
     Active Substance: PANTOPRAZOLE
     Indication: Gastrooesophageal reflux disease
     Dosage: 20 MG, QD (EVERY 2-3 DAYS)
     Route: 048
     Dates: start: 2011
  29. PANTOPRAZOLE [Concomitant]
     Active Substance: PANTOPRAZOLE
     Dosage: 20 MG
     Route: 065
     Dates: end: 20190530
  30. ROSUVASTATIN [Concomitant]
     Active Substance: ROSUVASTATIN
     Indication: Product used for unknown indication
     Dosage: UNK, QD
     Route: 065
  31. DOXYCYCLINE [Concomitant]
     Active Substance: DOXYCYCLINE
     Indication: Product used for unknown indication
     Dosage: 100 (1-0-1)
     Route: 065
  32. DOXYCYCLINE [Concomitant]
     Active Substance: DOXYCYCLINE
     Dosage: 100 (1-0-1)
     Route: 065
  33. DOXYCYCLINE [Concomitant]
     Active Substance: DOXYCYCLINE
     Dosage: 100 (1-0-1)
     Route: 065
  34. DOXYCYCLINE [Concomitant]
     Active Substance: DOXYCYCLINE
     Dosage: 100 (1-0-1)
     Route: 065
  35. DOXYCYCLINE [Concomitant]
     Active Substance: DOXYCYCLINE
     Dosage: 100 (1-0-1)
     Route: 065

REACTIONS (47)
  - Blood glucose increased [Recovered/Resolved]
  - Back pain [Not Recovered/Not Resolved]
  - Type 2 diabetes mellitus [Unknown]
  - Multiple sclerosis [Recovered/Resolved]
  - Lumbar vertebral fracture [Recovered/Resolved]
  - Basal cell carcinoma [Recovered/Resolved]
  - Arthralgia [Recovered/Resolved]
  - Myalgia [Recovered/Resolved]
  - Lyme disease [Not Recovered/Not Resolved]
  - Injection site swelling [Recovered/Resolved]
  - Aortic disorder [Recovered/Resolved]
  - B-lymphocyte count decreased [Recovered/Resolved]
  - Interleukin level increased [Unknown]
  - Cardiovascular disorder [Recovered/Resolved]
  - Herpes zoster [Recovered/Resolved]
  - Bronchitis [Recovered/Resolved]
  - Lymph node pain [Recovered/Resolved]
  - Intervertebral disc protrusion [Recovering/Resolving]
  - Muscular weakness [Recovered/Resolved]
  - Uhthoff^s phenomenon [Recovered/Resolved]
  - B-lymphocyte count decreased [Recovered/Resolved]
  - Uhthoff^s phenomenon [Not Recovered/Not Resolved]
  - Granuloma annulare [Not Recovered/Not Resolved]
  - Hyperhidrosis [Recovered/Resolved]
  - Fall [Unknown]
  - Haematoma [Recovered/Resolved]
  - Sensory disturbance [Not Recovered/Not Resolved]
  - Vaginal infection [Recovered/Resolved]
  - Pelvic pain [Recovered/Resolved]
  - Illness [Not Recovered/Not Resolved]
  - Urticaria [Recovered/Resolved]
  - Chills [Recovered/Resolved]
  - Fatigue [Recovered/Resolved]
  - Blood cholesterol increased [Recovered/Resolved]
  - Pain in extremity [Recovered/Resolved]
  - Fatigue [Recovered/Resolved]
  - Asthenia [Recovered/Resolved]
  - Headache [Unknown]
  - Depressed mood [Not Recovered/Not Resolved]
  - Epistaxis [Recovered/Resolved]
  - Paraesthesia [Not Recovered/Not Resolved]
  - Nasopharyngitis [Recovering/Resolving]
  - Paraesthesia [Recovering/Resolving]
  - Diarrhoea [Recovered/Resolved]
  - Arthralgia [Recovered/Resolved]
  - COVID-19 [Recovered/Resolved]
  - Product administration error [Unknown]

NARRATIVE: CASE EVENT DATE: 20180822
